FAERS Safety Report 6722741-3 (Version None)
Quarter: 2010Q2

REPORT INFORMATION
  Report Type: 
  Country: None (occurrence: None)
  Receive Date: 20100512
  Receipt Date: 20100506
  Transmission Date: 20101027
  Serious: Yes (Hospitalization)
  Sender: FDA-Public Use
  Company Number: US-GILEAD-2010-0029022

PATIENT
  Sex: Female
  Weight: 71.732 kg

DRUGS (16)
  1. LETAIRIS [Suspect]
     Indication: PULMONARY ARTERIAL HYPERTENSION
     Route: 048
     Dates: start: 20100117, end: 20100503
  2. REVATIO [Concomitant]
  3. ALDACTONE [Concomitant]
  4. LASIX [Concomitant]
  5. SOTALOL HCL [Concomitant]
  6. ALLEGRA [Concomitant]
  7. AMBIEN [Concomitant]
  8. SPIRIVA [Concomitant]
  9. SYMBICORT [Concomitant]
  10. BUTALBITAL [Concomitant]
  11. PREVACID DR [Concomitant]
  12. MAGNESIUM [Concomitant]
  13. LOVAZA [Concomitant]
  14. VITAMIN E [Concomitant]
  15. VITAMIN B-12 [Concomitant]
  16. VITAMIN B COMPLEX CAP [Concomitant]

REACTIONS (4)
  - HAEMOPTYSIS [None]
  - OEDEMA PERIPHERAL [None]
  - PNEUMONIA [None]
  - WEIGHT INCREASED [None]
